FAERS Safety Report 4796358-4 (Version None)
Quarter: 2005Q4

REPORT INFORMATION
  Report Type: 
  Country: None (occurrence: None)
  Receive Date: 20051006
  Receipt Date: 20051006
  Transmission Date: 20060501
  Serious: Yes (Hospitalization)
  Sender: FDA-Public Use
  Company Number: None

PATIENT
  Age: 27 Year
  Sex: Female
  Weight: 72 kg

DRUGS (1)
  1. LITHIUM 300MG [Suspect]
     Indication: BIPOLAR DISORDER
     Dosage: PO 300MG X 20 PILLS
     Route: 048
     Dates: start: 20050123

REACTIONS (4)
  - INTENTIONAL DRUG MISUSE [None]
  - LETHARGY [None]
  - OVERDOSE [None]
  - REFUSAL OF TREATMENT BY PATIENT [None]
